FAERS Safety Report 7523785-4 (Version None)
Quarter: 2011Q2

REPORT INFORMATION
  Report Type: 
  Country: None (occurrence: None)
  Receive Date: 20110603
  Receipt Date: 20110524
  Transmission Date: 20111010
  Serious: Yes (Hospitalization)
  Sender: FDA-Public Use
  Company Number: US-CELGENEUS-163-21880-11053208

PATIENT
  Sex: Female

DRUGS (10)
  1. ACYCLOVIR [Concomitant]
     Route: 065
  2. L-GLUTAMINE [Concomitant]
     Route: 065
  3. PERCOCET [Concomitant]
     Route: 065
  4. REVLIMID [Suspect]
     Dosage: 25 MILLIGRAM
     Route: 048
     Dates: start: 20110505
  5. DEXAMETHASONE [Concomitant]
     Route: 065
  6. NEXIUM [Concomitant]
     Route: 065
  7. GLUCOSAMINE [Concomitant]
     Route: 065
  8. CHONDROITIN COMPLEX [Concomitant]
     Route: 065
  9. CYMBALTA [Concomitant]
     Route: 065
  10. CARAFATE [Concomitant]
     Route: 065

REACTIONS (1)
  - HAEMOPTYSIS [None]
